FAERS Safety Report 25645253 (Version 1)
Quarter: 2025Q3

REPORT INFORMATION
  Report Type: Spontaneous
  Country: CA (occurrence: None)
  Receive Date: 20250801
  Receipt Date: 20250801
  Transmission Date: 20251021
  Serious: Yes (Life-Threatening, Disabling, Other)
  Sender: FDA-CTU
  Company Number: None

PATIENT
  Age: 39 Year
  Sex: Male

DRUGS (1)
  1. BIKTARVY [Suspect]
     Active Substance: BICTEGRAVIR SODIUM\EMTRICITABINE\TENOFOVIR ALAFENAMIDE FUMARATE

REACTIONS (8)
  - Patient dissatisfaction with treatment [None]
  - Product quality issue [None]
  - Product use in unapproved indication [None]
  - Product dispensing issue [None]
  - General physical health deterioration [None]
  - Legal problem [None]
  - Victim of abuse [None]
  - Weight increased [None]

NARRATIVE: CASE EVENT DATE: 20250117
